FAERS Safety Report 8103016-7 (Version None)
Quarter: 2012Q1

REPORT INFORMATION
  Report Type: 
  Country: None (occurrence: None)
  Receive Date: 20120201
  Receipt Date: 20120201
  Transmission Date: 20120608
  Serious: Yes (Other)
  Sender: FDA-Public Use
  Company Number: None

PATIENT
  Sex: Female

DRUGS (2)
  1. METFORMIN HCL [Suspect]
     Indication: DIABETES MELLITUS
     Dosage: 2 TABLETS
     Route: 048
     Dates: start: 20110301, end: 20110601
  2. MOBIC [Concomitant]

REACTIONS (4)
  - BLOOD GLUCOSE INCREASED [None]
  - APPARENT DEATH [None]
  - PRODUCT SUBSTITUTION ISSUE [None]
  - HAEMORRHAGE [None]
